FAERS Safety Report 17189187 (Version 1)
Quarter: 2019Q4

REPORT INFORMATION
  Report Type: Spontaneous
  Country: ES (occurrence: ES)
  Receive Date: 20191223
  Receipt Date: 20191223
  Transmission Date: 20200122
  Serious: Yes (Hospitalization)
  Sender: FDA-Public Use
  Company Number: ES-ACCORD-166276

PATIENT
  Age: 71 Year
  Sex: Female

DRUGS (3)
  1. CISPLATIN. [Suspect]
     Active Substance: CISPLATIN
     Indication: OROPHARYNGEAL CANCER
     Dosage: EVERY 3 WEEKS
     Route: 042
     Dates: start: 20191107, end: 20191114
  2. DOCETAXEL. [Interacting]
     Active Substance: DOCETAXEL
     Indication: OROPHARYNGEAL CANCER
     Dosage: EVERY 3 WEEKS
     Route: 042
     Dates: start: 20191107, end: 20191114
  3. CETUXIMAB. [Interacting]
     Active Substance: CETUXIMAB
     Indication: OROPHARYNGEAL CANCER
     Dosage: EVERY WEEK
     Route: 042
     Dates: start: 20191107, end: 20191114

REACTIONS (5)
  - Asthenia [Recovered/Resolved]
  - Neutropenia [Recovered/Resolved]
  - Vomiting [Recovered/Resolved]
  - Nausea [Recovered/Resolved]
  - Drug interaction [Unknown]

NARRATIVE: CASE EVENT DATE: 20191107
